FAERS Safety Report 21048769 (Version 2)
Quarter: 2022Q3

REPORT INFORMATION
  Report Type: Spontaneous
  Country: AU (occurrence: AU)
  Receive Date: 20220706
  Receipt Date: 20220815
  Transmission Date: 20221026
  Serious: Yes (Other)
  Sender: FDA-Public Use
  Company Number: AU-MYLANLABS-2022M1049901

PATIENT
  Age: 27 Year
  Sex: Male
  Weight: 124 kg

DRUGS (3)
  1. CLOZARIL [Suspect]
     Active Substance: CLOZAPINE
     Indication: Schizophrenia
     Dosage: UNK
     Route: 048
     Dates: start: 20201120, end: 2020
  2. CLOZARIL [Suspect]
     Active Substance: CLOZAPINE
     Dosage: 50/100 MG
     Route: 048
     Dates: start: 20201203, end: 20201207
  3. RISPERIDONE [Concomitant]
     Active Substance: RISPERIDONE
     Dosage: 10 MILLIGRAM, QD
     Route: 065

REACTIONS (19)
  - Myocarditis [Unknown]
  - Cardiomyopathy [Unknown]
  - Lethargy [Unknown]
  - Abdominal tenderness [Unknown]
  - Urinary tract infection [Unknown]
  - Upper respiratory tract infection [Unknown]
  - Chest discomfort [Unknown]
  - Tachypnoea [Unknown]
  - Productive cough [Unknown]
  - Salivary hypersecretion [Unknown]
  - Paraesthesia [Unknown]
  - Myalgia [Unknown]
  - Nausea [Unknown]
  - Fatigue [Unknown]
  - Headache [Unknown]
  - Hypotension [Unknown]
  - Pyrexia [Recovered/Resolved]
  - Nasal congestion [Unknown]
  - Sinus tachycardia [Unknown]

NARRATIVE: CASE EVENT DATE: 20201130
